FAERS Safety Report 7540658-1 (Version None)
Quarter: 2011Q2

REPORT INFORMATION
  Report Type: 
  Country: None (occurrence: None)
  Receive Date: 20110610
  Receipt Date: 20110531
  Transmission Date: 20111010
  Serious: Yes (Other)
  Sender: FDA-Public Use
  Company Number: PHHY2011IN47805

PATIENT
  Age: 29 Year
  Sex: Male

DRUGS (1)
  1. CLOZAPINE [Suspect]
     Indication: SCHIZOPHRENIA
     Dosage: 250 MG, QD

REACTIONS (10)
  - POSTURING [None]
  - NEGATIVISM [None]
  - EATING DISORDER [None]
  - WHITE BLOOD CELL COUNT DECREASED [None]
  - CATATONIA [None]
  - PYREXIA [None]
  - MUTISM [None]
  - NEUTROPHIL COUNT DECREASED [None]
  - WAXY FLEXIBILITY [None]
  - SPEECH DISORDER [None]
